FAERS Safety Report 7345367-X (Version None)
Quarter: 2011Q1

REPORT INFORMATION
  Report Type: 
  Country: None (occurrence: None)
  Receive Date: 20110310
  Receipt Date: 20110304
  Transmission Date: 20110831
  Serious: Yes (Other)
  Sender: FDA-Public Use
  Company Number: PHHY2011US17739

PATIENT
  Sex: Female

DRUGS (2)
  1. FORADIL [Suspect]
  2. SEREVENT [Suspect]

REACTIONS (1)
  - FEELING ABNORMAL [None]
